FAERS Safety Report 6012307-5 (Version None)
Quarter: 2008Q4

REPORT INFORMATION
  Report Type: 
  Country: None (occurrence: None)
  Receive Date: 20081218
  Receipt Date: 20081110
  Transmission Date: 20090506
  Serious: No
  Sender: FDA-Public Use
  Company Number: US-ASTRAZENECA-2008UW25109

PATIENT
  Age: 83 Year
  Sex: Female
  Weight: 90.7 kg

DRUGS (2)
  1. SYMBICORT [Suspect]
     Indication: DYSPNOEA
     Dosage: 80/4.5 MCG
     Route: 055
  2. MANY MEDICATIONS [Concomitant]

REACTIONS (2)
  - NAUSEA [None]
  - PRODUCT QUALITY ISSUE [None]
